FAERS Safety Report 8371808-5 (Version None)
Quarter: 2012Q2

REPORT INFORMATION
  Report Type: 
  Country: None (occurrence: None)
  Receive Date: 20120518
  Receipt Date: 20120516
  Transmission Date: 20120825
  Serious: Yes (Other)
  Sender: FDA-Public Use
  Company Number: US-ROCHE-1022687

PATIENT
  Sex: Male

DRUGS (4)
  1. ZOCOR [Concomitant]
  2. PROGRAF [Suspect]
     Indication: HEART TRANSPLANT
     Route: 048
  3. LASIX [Concomitant]
  4. CELLCEPT [Suspect]
     Indication: HEART TRANSPLANT
     Dosage: 1000
     Route: 048

REACTIONS (1)
  - CEREBROVASCULAR ACCIDENT [None]
